FAERS Safety Report 20863180 (Version 2)
Quarter: 2022Q2

REPORT INFORMATION
  Report Type: Report from Study
  Country: PT (occurrence: PT)
  Receive Date: 20220523
  Receipt Date: 20220606
  Transmission Date: 20220720
  Serious: Yes (Other)
  Sender: FDA-Public Use
  Company Number: PT-GILEAD-2017-0275229

PATIENT
  Age: 56 Year
  Sex: Male

DRUGS (3)
  1. IDELALISIB [Suspect]
     Active Substance: IDELALISIB
     Indication: Chronic lymphocytic leukaemia
     Dosage: UNK
     Route: 065
     Dates: start: 20150929, end: 201604
  2. IDELALISIB [Suspect]
     Active Substance: IDELALISIB
     Dosage: 150 MG, BID (STOP DATE SECOND QUARTER OF 2020)
     Route: 065
     Dates: start: 201604
  3. RITUXIMAB [Concomitant]
     Active Substance: RITUXIMAB

REACTIONS (8)
  - Leukopenia [Unknown]
  - Therapy partial responder [Unknown]
  - Neutropenia [Unknown]
  - Diverticulum [Unknown]
  - Fatigue [Unknown]
  - Myalgia [Unknown]
  - Pyrexia [Unknown]
  - Off label use [Not Recovered/Not Resolved]

NARRATIVE: CASE EVENT DATE: 20160401
